FAERS Safety Report 7367520-1 (Version None)
Quarter: 2011Q1

REPORT INFORMATION
  Report Type: 
  Country: None (occurrence: None)
  Receive Date: 20110322
  Receipt Date: 20100923
  Transmission Date: 20110831
  Serious: Yes (Life-Threatening, Hospitalization, Other)
  Sender: FDA-Public Use
  Company Number: US-BAYER-201011584NA

PATIENT
  Sex: Female
  Weight: 114 kg

DRUGS (16)
  1. CYCLOBENZAPRINE [Concomitant]
     Dosage: 10 MG, UNK
  2. COLACE [Concomitant]
  3. TEMAZEPAM [Concomitant]
     Dosage: 15 MG, UNK
  4. PROPOXYPHENE HCL [Concomitant]
  5. ZANTAC [Concomitant]
  6. YAZ [Suspect]
     Indication: MENSTRUAL CYCLE MANAGEMENT
     Route: 048
     Dates: start: 20060101, end: 20071201
  7. TRAZODONE [Concomitant]
     Indication: SLEEP DISORDER THERAPY
     Dates: start: 20070101, end: 20090101
  8. YASMIN [Suspect]
     Route: 048
     Dates: start: 20010101, end: 20071201
  9. ATENOLOL [Concomitant]
     Indication: BLOOD PRESSURE INCREASED
     Dates: start: 20040101
  10. LEXAPRO [Concomitant]
     Indication: DEPRESSION
     Dates: start: 20050101, end: 20070101
  11. WELLBUTRIN XL [Concomitant]
     Dosage: 150 MG, UNK
  12. YASMIN [Suspect]
     Indication: MENSTRUAL CYCLE MANAGEMENT
     Route: 048
     Dates: start: 20060101, end: 20071201
  13. RANITIDINE [Concomitant]
     Indication: GASTROOESOPHAGEAL REFLUX DISEASE
     Dates: start: 20050101
  14. NAPROXEN [Concomitant]
     Dates: start: 20050101
  15. YAZ [Suspect]
     Route: 048
     Dates: start: 20010101, end: 20071201
  16. VICODIN [Concomitant]

REACTIONS (6)
  - DEEP VEIN THROMBOSIS [None]
  - PULMONARY EMBOLISM [None]
  - GALLBLADDER DISORDER [None]
  - ARRHYTHMIA [None]
  - CHOLECYSTITIS CHRONIC [None]
  - CHOLELITHIASIS [None]
